FAERS Safety Report 23820302 (Version 2)
Quarter: 2024Q2

REPORT INFORMATION
  Report Type: Spontaneous
  Country: IN (occurrence: IN)
  Receive Date: 20240506
  Receipt Date: 20240603
  Transmission Date: 20240715
  Serious: Yes (Life-Threatening, Hospitalization)
  Sender: FDA-Public Use
  Company Number: IN-CIPLA LTD.-2024IN03214

PATIENT

DRUGS (2)
  1. LEVALBUTEROL [Suspect]
     Active Substance: LEVALBUTEROL
     Indication: Product used for unknown indication
     Dosage: UNK (7-8 SPRAYS 2 TIMES IN A DAY)
     Route: 065
  2. LEVALBUTEROL [Suspect]
     Active Substance: LEVALBUTEROL
     Dosage: UNK (7-8 SPRAYS 2 TIMES IN A DAY)
     Route: 065
     Dates: start: 202403

REACTIONS (9)
  - Dyspnoea [Unknown]
  - General physical health deterioration [Unknown]
  - Suffocation feeling [Unknown]
  - Fall [Unknown]
  - Product packaging quantity issue [Unknown]
  - Product prescribing error [Unknown]
  - Product quality issue [Unknown]
  - Panic attack [Unknown]
  - Malaise [Unknown]

NARRATIVE: CASE EVENT DATE: 20240101
